FAERS Safety Report 6877073-X (Version None)
Quarter: 2010Q3

REPORT INFORMATION
  Report Type: 
  Country: None (occurrence: None)
  Receive Date: 20100727
  Receipt Date: 20100727
  Transmission Date: 20110219
  Serious: Yes (Life-Threatening)
  Sender: FDA-Public Use
  Company Number: None

PATIENT
  Age: 26 Year
  Sex: Female
  Weight: 104.3273 kg

DRUGS (3)
  1. CYMBALTA [Suspect]
     Indication: GENERALISED ANXIETY DISORDER
     Dosage: 20 MG TWICE DAILY PO
     Route: 048
     Dates: start: 20100607, end: 20100718
  2. CYMBALTA [Suspect]
     Indication: PANIC REACTION
     Dosage: 20 MG TWICE DAILY PO
     Route: 048
     Dates: start: 20100607, end: 20100718
  3. CYMBALTA [Suspect]
     Indication: SOCIAL PHOBIA
     Dosage: 20 MG TWICE DAILY PO
     Route: 048
     Dates: start: 20100607, end: 20100718

REACTIONS (12)
  - AGORAPHOBIA [None]
  - APATHY [None]
  - CHILLS [None]
  - MENTAL STATUS CHANGES [None]
  - MOOD SWINGS [None]
  - PANIC ATTACK [None]
  - PARANOIA [None]
  - PYREXIA [None]
  - SELF INJURIOUS BEHAVIOUR [None]
  - SOCIAL PHOBIA [None]
  - SUICIDAL IDEATION [None]
  - VOMITING [None]
